FAERS Safety Report 7591467-9 (Version None)
Quarter: 2011Q3

REPORT INFORMATION
  Report Type: 
  Country: None (occurrence: None)
  Receive Date: 20110701
  Receipt Date: 20110701
  Transmission Date: 20111222
  Serious: Yes (Life-Threatening, Hospitalization, Disabling, Other)
  Sender: FDA-Public Use
  Company Number: None

PATIENT
  Age: 23 Year
  Sex: Female
  Weight: 104.3273 kg

DRUGS (1)
  1. MIRENA [Suspect]
     Indication: CONTRACEPTION
     Dosage: 1 IUD EVERY 5 YEARS INTRA-UTERINE
     Route: 015
     Dates: start: 20110616

REACTIONS (13)
  - MIGRAINE [None]
  - CONFUSIONAL STATE [None]
  - MALAISE [None]
  - BACK PAIN [None]
  - DIZZINESS [None]
  - ABDOMINAL PAIN [None]
  - OVARIAN CYST [None]
  - ANXIETY [None]
  - FATIGUE [None]
  - MUSCLE SPASMS [None]
  - ASTHENIA [None]
  - DELIRIUM [None]
  - VERTIGO [None]
